FAERS Safety Report 15223188 (Version 3)
Quarter: 2018Q4

REPORT INFORMATION
  Report Type: Spontaneous
  Country: JP (occurrence: JP)
  Receive Date: 20180731
  Receipt Date: 20181025
  Transmission Date: 20190204
  Serious: Yes (Death, Life-Threatening)
  Sender: FDA-Public Use
  Company Number: JP-CELGENEUS-JPN-20180709591

PATIENT
  Age: 70 Year
  Sex: Male
  Weight: 38.5 kg

DRUGS (2)
  1. ABRAXANE [Suspect]
     Active Substance: PACLITAXEL
     Indication: SQUAMOUS CELL CARCINOMA OF LUNG
     Dosage: 160 MILLIGRAM
     Route: 041
     Dates: start: 20170523, end: 20171221
  2. TENELIA [Concomitant]
     Active Substance: TENELIGLIPTIN
     Indication: TYPE 2 DIABETES MELLITUS
     Dosage: 20 MILLIGRAM
     Route: 048
     Dates: start: 20170202, end: 20180126

REACTIONS (2)
  - Bronchial fistula [Fatal]
  - Mediastinitis [Fatal]

NARRATIVE: CASE EVENT DATE: 20180104
